FAERS Safety Report 23732921 (Version 1)
Quarter: 2024Q2

REPORT INFORMATION
  Report Type: Spontaneous
  Country: US (occurrence: None)
  Receive Date: 20240411
  Receipt Date: 20240411
  Transmission Date: 20240715
  Serious: No
  Sender: FDA-Public Use
  Company Number: None

PATIENT
  Age: 70 Year
  Sex: Male
  Weight: 112.5 kg

DRUGS (2)
  1. APIXABAN [Suspect]
     Active Substance: APIXABAN
     Indication: Atrial fibrillation
     Dosage: FREQUENCY : TWICE A DAY;?
     Route: 048
     Dates: start: 20231123, end: 20240409
  2. Amiodarone 200mg daily [Concomitant]
     Dates: start: 20231114

REACTIONS (1)
  - Haemorrhage intracranial [None]

NARRATIVE: CASE EVENT DATE: 20240409
